FAERS Safety Report 6060654-3 (Version None)
Quarter: 2009Q1

REPORT INFORMATION
  Report Type: 
  Country: None (occurrence: None)
  Receive Date: 20090130
  Receipt Date: 20090130
  Transmission Date: 20090719
  Serious: Yes (Hospitalization)
  Sender: FDA-Public Use
  Company Number: None

PATIENT
  Sex: Female
  Weight: 54.4316 kg

DRUGS (1)
  1. RESTORIL [Suspect]
     Indication: SLEEP DISORDER
     Dosage: 15 MG TOOK ONE TABLET ORAL IN PAST HAD TAKEN 15MG TWICE
     Route: 048
     Dates: start: 20090104

REACTIONS (2)
  - AMNESIA [None]
  - SOMNOLENCE [None]
